FAERS Safety Report 17115176 (Version 1)
Quarter: 2019Q4

REPORT INFORMATION
  Report Type: Spontaneous
  Country: US (occurrence: US)
  Receive Date: 20191205
  Receipt Date: 20191205
  Transmission Date: 20200122
  Serious: No
  Sender: FDA-Public Use
  Company Number: US-GW PHARMA-201910USGW3918

PATIENT

DRUGS (5)
  1. ONFI [Suspect]
     Active Substance: CLOBAZAM
     Indication: PRODUCT USED FOR UNKNOWN INDICATION
     Dosage: UNK
     Route: 065
  2. EPIDIOLEX [Suspect]
     Active Substance: CANNABIDIOL
     Indication: EPILEPSY
     Dosage: 510 MILLIGRAM, BID
     Route: 048
     Dates: start: 20190208
  3. ONFI [Suspect]
     Active Substance: CLOBAZAM
     Dosage: DOSE DECREASED
     Route: 065
  4. STIRIPENTOL [Concomitant]
     Active Substance: STIRIPENTOL
     Indication: PRODUCT USED FOR UNKNOWN INDICATION
     Dosage: UNK
     Route: 065
  5. STIRIPENTOL [Concomitant]
     Active Substance: STIRIPENTOL
     Dosage: DOSE INCREASED
     Route: 065

REACTIONS (5)
  - Somnolence [Unknown]
  - Lethargy [Unknown]
  - Diarrhoea [Unknown]
  - Hypersomnia [Unknown]
  - Seizure [Unknown]

NARRATIVE: CASE EVENT DATE: 2019
